FAERS Safety Report 8786879 (Version 1)
Quarter: 2012Q4

REPORT INFORMATION
  Report Type: 
  Country: US (occurrence: US)
  Receive Date: 20120914
  Receipt Date: 20120914
  Transmission Date: 20130627
  Serious: No
  Sender: FDA-Public Use
  Company Number: US-VERTEX PHARMACEUTICAL INC.-AE-2012-011281

PATIENT
  Sex: Male

DRUGS (8)
  1. INCIVEK [Suspect]
     Indication: HEPATITIS C
     Route: 048
     Dates: start: 201207
  2. PEG INTRON [Concomitant]
     Indication: HEPATITIS C
     Route: 058
     Dates: start: 201207
  3. RIBAVIRIN [Concomitant]
     Indication: HEPATITIS C
     Route: 048
     Dates: start: 201207
  4. AMLODIPINE [Concomitant]
     Indication: HYPERTENSION
  5. ENALAPRIL [Concomitant]
     Indication: HYPERTENSION
  6. DIAZEPAM [Concomitant]
     Indication: PAIN
  7. PROPRANOLOL [Concomitant]
     Indication: PAIN
  8. TRAMADOL [Concomitant]
     Indication: PAIN

REACTIONS (1)
  - Headache [Not Recovered/Not Resolved]
